FAERS Safety Report 4559515-8 (Version None)
Quarter: 2005Q1

REPORT INFORMATION
  Report Type: 
  Country: None (occurrence: None)
  Receive Date: 20050119
  Receipt Date: 20050106
  Transmission Date: 20050727
  Serious: Yes (Other)
  Sender: FDA-Public Use
  Company Number: DEU-2004-0001191

PATIENT
  Age: 40 Year
  Sex: Female
  Weight: 72 kg

DRUGS (6)
  1. OXYCODONE HCL [Suspect]
     Indication: PAIN
     Dosage: 10 MG BID ORAL
     Route: 048
     Dates: start: 20031101
  2. VALDECOXIB [Suspect]
  3. HERBAL PREPARATION [Concomitant]
  4. MOBEC ^BOEHRINGER INGELHEIM^ (MELOXICAM) [Concomitant]
  5. MOVICOL (MACROGOL, SODIUM CHLORIDE, POTASSIUM CHLORIDE, SODIUM BICARBO [Concomitant]
  6. VALECOXIB [Concomitant]

REACTIONS (1)
  - TIC [None]
